FAERS Safety Report 6669194-1 (Version None)
Quarter: 2010Q2

REPORT INFORMATION
  Report Type: 
  Country: None (occurrence: None)
  Receive Date: 20100406
  Receipt Date: 20100319
  Transmission Date: 20101027
  Serious: No
  Sender: FDA-Public Use
  Company Number: US-B.I. PHARMACEUTICALS,INC./RIDGEFIELD-2010-BP-03322BP

PATIENT
  Sex: Female
  Weight: 122.47 kg

DRUGS (8)
  1. MIRAPEX [Suspect]
     Indication: MUSCLE SPASTICITY
     Dosage: 0.5 MG
     Dates: start: 20070708, end: 20080501
  2. MIRAPEX [Suspect]
     Indication: PAIN IN EXTREMITY
  3. MIRAPEX [Suspect]
     Indication: SLEEP DISORDER
  4. MIRAPEX [Suspect]
     Indication: NERVE INJURY
  5. MIRAPEX [Suspect]
     Indication: RESTLESS LEGS SYNDROME
  6. VICKS COLD MEDICINE [Suspect]
  7. CLORISEPTIC THROAT SPRAY [Suspect]
  8. INSULIN [Concomitant]
     Indication: DIABETES MELLITUS
     Route: 058
     Dates: start: 20050101

REACTIONS (7)
  - CHEILITIS [None]
  - DYSPHAGIA [None]
  - EATING DISORDER [None]
  - INSOMNIA [None]
  - STOMATITIS [None]
  - SWOLLEN TONGUE [None]
  - WEIGHT DECREASED [None]
